FAERS Safety Report 9410397 (Version 1)
Quarter: 2013Q3

REPORT INFORMATION
  Report Type: Report from Study
  Country: US (occurrence: US)
  Receive Date: 20130719
  Receipt Date: 20130719
  Transmission Date: 20140515
  Serious: Yes (Hospitalization)
  Sender: FDA-Public Use
  Company Number: US-GLAXOSMITHKLINE-A1034017A

PATIENT
  Age: 51 Year
  Sex: Male
  Weight: 87.1 kg

DRUGS (10)
  1. MELPHALAN [Suspect]
     Indication: AMYLOIDOSIS
     Route: 042
  2. BORTEZOMIB [Suspect]
     Indication: AMYLOIDOSIS
     Route: 042
     Dates: start: 20130621, end: 20130701
  3. DEXAMETHASONE [Suspect]
     Indication: AMYLOIDOSIS
  4. PROTONIX [Concomitant]
  5. ATIVAN [Concomitant]
  6. OXYCODONE [Concomitant]
  7. OFLOXACIN [Concomitant]
  8. DIFLUCAN [Concomitant]
  9. LEVOFLOXACIN [Concomitant]
  10. ACYCLOVIR [Concomitant]

REACTIONS (1)
  - Pyrexia [Not Recovered/Not Resolved]
